FAERS Safety Report 5845121-1 (Version None)
Quarter: 2008Q3

REPORT INFORMATION
  Report Type: 
  Country: None (occurrence: None)
  Receive Date: 20080813
  Receipt Date: 20080813
  Transmission Date: 20090109
  Serious: Yes (Hospitalization)
  Sender: FDA-Public Use
  Company Number: None

PATIENT
  Sex: Female
  Weight: 112.8 kg

DRUGS (1)
  1. CYTARABINE [Suspect]
     Dosage: 33300 MG
     Dates: end: 20080630

REACTIONS (7)
  - ALPHA HAEMOLYTIC STREPTOCOCCAL INFECTION [None]
  - CONJUNCTIVAL HAEMORRHAGE [None]
  - HAEMATURIA [None]
  - HAEMOPTYSIS [None]
  - PNEUMONIA [None]
  - PULMONARY HAEMORRHAGE [None]
  - RECTAL HAEMORRHAGE [None]
